FAERS Safety Report 21085322 (Version 1)
Quarter: 2022Q3

REPORT INFORMATION
  Report Type: Report from Study
  Country: US (occurrence: US)
  Receive Date: 20220714
  Receipt Date: 20220714
  Transmission Date: 20221026
  Serious: Yes (Hospitalization)
  Sender: FDA-Public Use
  Company Number: US-ABBVIE-22K-163-4467698-00

PATIENT

DRUGS (2)
  1. RINVOQ [Suspect]
     Active Substance: UPADACITINIB
     Indication: Rheumatoid arthritis
     Route: 048
  2. BAMLANIVIMAB [Concomitant]
     Active Substance: BAMLANIVIMAB
     Indication: COVID-19 immunisation
     Route: 030
     Dates: start: 20210108, end: 20210108

REACTIONS (1)
  - COVID-19 [Unknown]
